FAERS Safety Report 9172138 (Version 1)
Quarter: 2013Q1

REPORT INFORMATION
  Report Type: Spontaneous
  Country: BR (occurrence: BR)
  Receive Date: 20130319
  Receipt Date: 20130319
  Transmission Date: 20140127
  Serious: Yes (Hospitalization)
  Sender: FDA-Public Use
  Company Number: BR-BRISTOL-MYERS SQUIBB COMPANY-17481003

PATIENT
  Age: 60 Year
  Sex: Male

DRUGS (3)
  1. ONGLYZA TABS 5 MG [Suspect]
     Indication: DIABETES MELLITUS
     Dosage: INTR-UNK;REST ON 2013
     Route: 048
     Dates: start: 2011
  2. METFORMIN HCL [Suspect]
     Indication: DIABETES MELLITUS
  3. DIOVAN AMLO [Concomitant]
     Dosage: 1DF=160MG/5MG

REACTIONS (3)
  - Hepatic cancer [Unknown]
  - Gastrointestinal carcinoma [Unknown]
  - Diarrhoea [Unknown]
